FAERS Safety Report 16259365 (Version 1)
Quarter: 2019Q2

REPORT INFORMATION
  Report Type: Spontaneous
  Country: GB (occurrence: GB)
  Receive Date: 20190501
  Receipt Date: 20190501
  Transmission Date: 20190711
  Serious: Yes (Other)
  Sender: FDA-Public Use
  Company Number: GB-ACCORD-125058

PATIENT
  Age: 74 Year
  Sex: Male
  Weight: 111 kg

DRUGS (9)
  1. IVABRADINE/IVABRADINE HYDROCHLORIDE [Concomitant]
     Dates: start: 20181218, end: 20190228
  2. ROSUVASTATIN/ROSUVASTATIN CALCIUM [Concomitant]
     Dates: start: 20181218
  3. SPIRONOLACTONE. [Concomitant]
     Active Substance: SPIRONOLACTONE
     Dates: start: 20190228
  4. SIMVASTATIN. [Suspect]
     Active Substance: SIMVASTATIN
     Indication: PRODUCT USED FOR UNKNOWN INDICATION
     Dates: start: 20080219
  5. CODEINE [Concomitant]
     Active Substance: CODEINE
     Dates: start: 20190304
  6. BISOPROLOL [Concomitant]
     Active Substance: BISOPROLOL
     Dates: start: 20190228
  7. FUROSEMIDE. [Concomitant]
     Active Substance: FUROSEMIDE
     Dosage: EACH MORNING
     Dates: start: 20181218
  8. RAMIPRIL. [Concomitant]
     Active Substance: RAMIPRIL
     Dates: start: 20190228
  9. CLOPIDOGREL [Concomitant]
     Active Substance: CLOPIDOGREL BISULFATE
     Dates: start: 20181218

REACTIONS (1)
  - Hypersensitivity [Unknown]
